FAERS Safety Report 19896086 (Version 1)
Quarter: 2021Q3

REPORT INFORMATION
  Report Type: Report from Study
  Country: US (occurrence: US)
  Receive Date: 20210929
  Receipt Date: 20210929
  Transmission Date: 20211014
  Serious: Yes (Hospitalization)
  Sender: FDA-Public Use
  Company Number: US-ROCHE-2667846

PATIENT
  Age: 53 Year
  Sex: Female
  Weight: 73.2 kg

DRUGS (17)
  1. COBIMETINIB. [Suspect]
     Active Substance: COBIMETINIB
     Indication: NON-SMALL CELL LUNG CANCER
     Dosage: DAY 1 AND DAY 2. ?ON 09/SEP/2020, SHE RESTARTED COBIMETINIB.
     Route: 048
     Dates: start: 20200811, end: 20200818
  2. AMLODIPINE [Concomitant]
     Active Substance: AMLODIPINE BESYLATE
     Indication: HYPERTENSION
     Dates: start: 20200518, end: 20200825
  3. CETRIZINE [Concomitant]
     Active Substance: CETIRIZINE HYDROCHLORIDE
     Indication: RHINITIS ALLERGIC
     Dates: start: 20200603
  4. LIDOCAINE;PROCAINE [Concomitant]
     Dosage: 2.5?2.5
     Dates: start: 20200206
  5. DEXTROMETHORPHAN?GUAIFENESIN [Concomitant]
     Active Substance: DEXTROMETHORPHAN\GUAIFENESIN
     Indication: COUGH
     Dates: start: 20200617
  6. ESTRADIOL. [Concomitant]
     Active Substance: ESTRADIOL
     Indication: DYSPAREUNIA
     Dosage: 0.1 MG/GRAM
     Dates: start: 20190109
  7. NAPROXEN SODIUM. [Concomitant]
     Active Substance: NAPROXEN SODIUM
     Indication: HYPERTROPHIC OSTEOARTHROPATHY
     Dates: start: 20191030
  8. TRIAMCINOLONE [Concomitant]
     Active Substance: TRIAMCINOLONE
     Indication: DRUG REACTION WITH EOSINOPHILIA AND SYSTEMIC SYMPTOMS
     Dates: start: 20200717
  9. MEROPENEM. [Concomitant]
     Active Substance: MEROPENEM
     Route: 042
  10. OXYCODONE [Concomitant]
     Active Substance: OXYCODONE
     Indication: PAIN
     Dates: start: 20200626
  11. PREDNISONE. [Concomitant]
     Active Substance: PREDNISONE
     Dates: start: 20200723, end: 20200820
  12. GABAPENTIN. [Concomitant]
     Active Substance: GABAPENTIN
     Indication: PAIN
     Dates: start: 20200711
  13. PROCHLORPERAZINE. [Concomitant]
     Active Substance: PROCHLORPERAZINE
     Indication: NAUSEA
     Dates: start: 20180808
  14. APIXABAN [Concomitant]
     Active Substance: APIXABAN
     Dates: start: 20200413
  15. TUMS [Concomitant]
     Active Substance: CALCIUM CARBONATE
     Indication: GASTROOESOPHAGEAL REFLUX DISEASE
     Dates: start: 20200805
  16. BENZONATATE. [Concomitant]
     Active Substance: BENZONATATE
     Indication: COUGH
     Dates: start: 20200422
  17. SULFAMETHOXAZOLE/TRIMETHOPRIM [Concomitant]
     Active Substance: SULFAMETHOXAZOLE\TRIMETHOPRIM
     Indication: ANTIFUNGAL PROPHYLAXIS
     Dates: start: 20200721, end: 20200825

REACTIONS (2)
  - Pleural effusion [Recovered/Resolved]
  - Sepsis [Recovered/Resolved]

NARRATIVE: CASE EVENT DATE: 20200818
